FAERS Safety Report 11074644 (Version 1)
Quarter: 2015Q2

REPORT INFORMATION
  Report Type: Spontaneous
  Country: US (occurrence: US)
  Receive Date: 20150429
  Receipt Date: 20150429
  Transmission Date: 20150821
  Serious: No
  Sender: FDA-Public Use
  Company Number: US-BIOGENIDEC-2015BI056046

PATIENT
  Sex: Male

DRUGS (2)
  1. AVONEX [Suspect]
     Active Substance: INTERFERON BETA-1A
     Indication: PRODUCT USED FOR UNKNOWN INDICATION
     Route: 030
  2. TYSABRI [Concomitant]
     Active Substance: NATALIZUMAB
     Route: 042
     Dates: start: 201408

REACTIONS (2)
  - Influenza [Unknown]
  - Feeling abnormal [Unknown]
